FAERS Safety Report 6773614-1 (Version None)
Quarter: 2010Q2

REPORT INFORMATION
  Report Type: 
  Country: None (occurrence: None)
  Receive Date: 20100614
  Receipt Date: 20100526
  Transmission Date: 20101027
  Serious: Yes (Other)
  Sender: FDA-Public Use
  Company Number: US-1182127

PATIENT
  Sex: Female

DRUGS (1)
  1. PILOCARPINE HCL [Suspect]
     Dosage: OPHTHALMIC
     Route: 047

REACTIONS (4)
  - MYOPIA [None]
  - NIGHT BLINDNESS [None]
  - VISION BLURRED [None]
  - VISUAL ACUITY REDUCED [None]
